FAERS Safety Report 17801421 (Version 1)
Quarter: 2020Q2

REPORT INFORMATION
  Report Type: Spontaneous
  Country: US (occurrence: US)
  Receive Date: 20200517
  Receipt Date: 20200517
  Transmission Date: 20200714
  Serious: No
  Sender: FDA-Public Use
  Company Number: None

PATIENT
  Age: 85 Year
  Sex: Female

DRUGS (1)
  1. RETACRIT [Suspect]
     Active Substance: EPOETIN ALFA-EPBX
     Indication: MYELODYSPLASTIC SYNDROME
     Dosage: ?          OTHER DOSE:60,000UNITS;?
     Route: 058
     Dates: start: 201905

REACTIONS (2)
  - Fracture [None]
  - Muscle strain [None]

NARRATIVE: CASE EVENT DATE: 20200510
